FAERS Safety Report 23333262 (Version 1)
Quarter: 2023Q4

REPORT INFORMATION
  Report Type: Spontaneous
  Country: US (occurrence: US)
  Receive Date: 20231222
  Receipt Date: 20231222
  Transmission Date: 20240110
  Serious: Yes (Death)
  Sender: FDA-Public Use
  Company Number: US-Covis Pharma GmbH-2023COV01981

PATIENT
  Age: 87 Year
  Sex: Male

DRUGS (5)
  1. ALTOPREV [Suspect]
     Active Substance: LOVASTATIN
     Route: 048
  2. METOPROLOL [Suspect]
     Active Substance: METOPROLOL
  3. CARBAMAZEPINE [Suspect]
     Active Substance: CARBAMAZEPINE
  4. LISINOPRIL [Suspect]
     Active Substance: LISINOPRIL
  5. SALICYLATE [Suspect]
     Active Substance: SALICYLIC ACID

REACTIONS (1)
  - Death [Fatal]
